FAERS Safety Report 18574791 (Version 1)
Quarter: 2020Q4

REPORT INFORMATION
  Report Type: Spontaneous
  Country: ES (occurrence: ES)
  Receive Date: 20201203
  Receipt Date: 20201203
  Transmission Date: 20210114
  Serious: Yes (Other)
  Sender: FDA-Public Use
  Company Number: ES-PFIZER INC-2020360772

PATIENT
  Age: 44 Year
  Sex: Female

DRUGS (4)
  1. PERTUZUMAB. [Concomitant]
     Active Substance: PERTUZUMAB
     Indication: HER2 POSITIVE BREAST CANCER
     Dosage: UNK, CYCLIC (Q3W (4CYCLE))
     Dates: start: 201812
  2. PACLITAXEL. [Suspect]
     Active Substance: PACLITAXEL
     Indication: HER2 POSITIVE BREAST CANCER
     Dosage: 8 MG/KG, EVERY 3 WEEKS (LOADING DOSE OF 8MG/KG AND THEN 6MG/KG EVERY 3 WEEKS (4CYCLES))
     Dates: start: 201812
  3. PACLITAXEL. [Suspect]
     Active Substance: PACLITAXEL
     Dosage: 6 MG/KG, EVERY 3 WEEKS (LOADING DOSE OF 8MG/KG AND THEN 6MG/KG EVERY 3 WEEKS (4CYCLES))
     Dates: end: 201904
  4. TRASTUZUMAB. [Concomitant]
     Active Substance: TRASTUZUMAB
     Indication: HER2 POSITIVE BREAST CANCER
     Dosage: UNK, CYCLIC (Q3W (18CYCLES))
     Route: 065
     Dates: start: 201812

REACTIONS (2)
  - Neuropathy peripheral [Recovering/Resolving]
  - Neurotoxicity [Recovering/Resolving]
